FAERS Safety Report 6407218-7 (Version None)
Quarter: 2009Q4

REPORT INFORMATION
  Report Type: 
  Country: None (occurrence: None)
  Receive Date: 20091015
  Receipt Date: 20081112
  Transmission Date: 20100525
  Serious: Yes (Hospitalization)
  Sender: FDA-Public Use
  Company Number: MSER20080034

PATIENT
  Age: 63 Year
  Sex: Male
  Weight: 66.5 kg

DRUGS (3)
  1. MORPHINE [Suspect]
     Indication: PAIN
     Dosage: ORAL
     Route: 048
     Dates: start: 20080513, end: 20080601
  2. SUNITINIB MALATE (ALL OTHER THERAPEUTIC PRODUCTS) [Suspect]
     Indication: TRANSITIONAL CELL CARCINOMA
     Dosage: DAILY, ORAL
     Route: 048
     Dates: start: 20080618, end: 20080601
  3. SUNITINIB MALATE (ALL OTHER THERAPEUTIC PRODUCTS) [Suspect]
     Indication: TRANSITIONAL CELL CARCINOMA
     Dosage: DAILY, ORAL
     Route: 048
     Dates: start: 20080703, end: 20080715

REACTIONS (7)
  - BACTERIAL TEST POSITIVE [None]
  - BLOOD CULTURE POSITIVE [None]
  - CONFUSIONAL STATE [None]
  - DEHYDRATION [None]
  - DISEASE PROGRESSION [None]
  - PAIN [None]
  - URETHRAL CANCER [None]
